FAERS Safety Report 9253297 (Version 1)
Quarter: 2013Q2

REPORT INFORMATION
  Report Type: Spontaneous
  Country: TR (occurrence: TR)
  Receive Date: 20130424
  Receipt Date: 20130424
  Transmission Date: 20140414
  Serious: Yes (Hospitalization)
  Sender: FDA-Public Use
  Company Number: TR-MYLANLABS-2013S1008268

PATIENT
  Age: 25 Year
  Sex: Female
  Weight: 57 kg

DRUGS (2)
  1. SPIRONOLACTONE [Suspect]
     Indication: HIRSUTISM
     Dosage: 200 MG/DAY, THEN 2 TABLETS
     Route: 065
  2. SPIRONOLACTONE [Suspect]
     Indication: HIRSUTISM
     Dosage: 2 TABLETS (NO CAPSULE) TOGETHER
     Route: 048

REACTIONS (3)
  - Retching [Recovered/Resolved]
  - Pneumomediastinum [Recovered/Resolved]
  - Wrong technique in drug usage process [Recovered/Resolved]
